FAERS Safety Report 11113719 (Version 2)
Quarter: 2015Q2

REPORT INFORMATION
  Report Type: Report from Study
  Country: US (occurrence: US)
  Receive Date: 20150514
  Receipt Date: 20150617
  Transmission Date: 20150821
  Serious: Yes (Hospitalization, Disabling)
  Sender: FDA-Public Use
  Company Number: US-GLAXOSMITHKLINE-US2015061358

PATIENT
  Age: 69 Year
  Sex: Female
  Weight: 63.2 kg

DRUGS (2)
  1. DABRAFENIB [Suspect]
     Active Substance: DABRAFENIB
     Dosage: 150 MG, BID
     Dates: start: 20150327, end: 20150409
  2. DABRAFENIB [Suspect]
     Active Substance: DABRAFENIB
     Indication: COLON CANCER
     Dosage: 150 MG, UNK
     Dates: start: 20150313, end: 20150326

REACTIONS (1)
  - Cognitive disorder [Recovered/Resolved]

NARRATIVE: CASE EVENT DATE: 20150504
